FAERS Safety Report 8834764 (Version 3)
Quarter: 2013Q1

REPORT INFORMATION
  Report Type: Spontaneous
  Country: PE (occurrence: None)
  Receive Date: 20121009
  Receipt Date: 20121108
  Transmission Date: 20140127
  Serious: Yes (Other)
  Sender: FDA-Public Use
  Company Number: AUR-APL-2012-04357

PATIENT
  Age: 29 Year
  Sex: Male

DRUGS (8)
  1. EFAVIRENZ [Suspect]
     Indication: ANTIRETROVIRAL THERAPY
  2. ZIDOVUDINE (ZIDOVUDINE) [Suspect]
     Indication: ANTIRETROVIRAL THERAPY
  3. LAMIVUDINE [Suspect]
     Indication: ANTIRETROVIRAL THERAPY
  4. ISONIAZID (ISONIAZID) [Concomitant]
  5. RIFAMPIN (RIFAMPICIN) [Concomitant]
  6. PYRAZINAMIDE (PYRAZINAMIDE) [Concomitant]
  7. ETHAMBUTOL (ETHAMBUTOL) [Concomitant]
  8. PREDNISONE (PREDNISONE) [Concomitant]

REACTIONS (2)
  - Immune reconstitution inflammatory syndrome associated tuberculosis [None]
  - Encephalitis [None]
